FAERS Safety Report 23799813 (Version 4)
Quarter: 2024Q3

REPORT INFORMATION
  Report Type: Spontaneous
  Country: US (occurrence: US)
  Receive Date: 20240430
  Receipt Date: 20240827
  Transmission Date: 20241017
  Serious: No
  Sender: BIOVITRUM
  Company Number: US-BIOVITRUM-2024-US-006473

PATIENT
  Age: 73 Year
  Sex: Male

DRUGS (3)
  1. VONJO [Suspect]
     Active Substance: PACRITINIB
     Indication: Myelofibrosis
     Dosage: TWICE DAILY
     Route: 048
     Dates: start: 20230308
  2. VONJO [Suspect]
     Active Substance: PACRITINIB
     Dosage: DAILY
     Route: 048
     Dates: start: 20230308
  3. VONJO [Suspect]
     Active Substance: PACRITINIB
     Dosage: TWICE DAILY
     Route: 048
     Dates: start: 20230308

REACTIONS (5)
  - Off label use [Not Recovered/Not Resolved]
  - Diarrhoea [Recovering/Resolving]
  - Nausea [Recovering/Resolving]
  - Vomiting [Recovering/Resolving]
  - Asthenia [Unknown]

NARRATIVE: CASE EVENT DATE: 20230308
